FAERS Safety Report 7221842-3 (Version None)
Quarter: 2011Q1

REPORT INFORMATION
  Report Type: 
  Country: None (occurrence: None)
  Receive Date: 20110112
  Receipt Date: 20110104
  Transmission Date: 20110831
  Serious: Yes (Hospitalization)
  Sender: FDA-Public Use
  Company Number: A0904237A

PATIENT
  Age: 70 Year
  Sex: Female

DRUGS (1)
  1. TYKERB [Suspect]
     Dosage: 1000MG PER DAY
     Route: 048
     Dates: start: 20101221, end: 20101223

REACTIONS (7)
  - SKIN EXFOLIATION [None]
  - PYREXIA [None]
  - DIARRHOEA [None]
  - VOMITING [None]
  - ERYTHEMA [None]
  - ASTHENIA [None]
  - RASH GENERALISED [None]
